FAERS Safety Report 8238070-5 (Version None)
Quarter: 2012Q1

REPORT INFORMATION
  Report Type: 
  Country: None (occurrence: None)
  Receive Date: 20120327
  Receipt Date: 20120320
  Transmission Date: 20120608
  Serious: Yes (Life-Threatening, Hospitalization, Other)
  Sender: FDA-Public Use
  Company Number: VE-GLAXOSMITHKLINE-A0971151A

PATIENT
  Age: 53 Year
  Sex: Male

DRUGS (3)
  1. ALPRAZOLAM [Concomitant]
     Indication: DEPRESSION
     Dosage: 2MG PER DAY
     Route: 048
     Dates: start: 20120117, end: 20120310
  2. LAMICTAL [Suspect]
     Indication: DEPRESSION
     Dosage: 100MG PER DAY
     Route: 048
     Dates: start: 20120117, end: 20120301
  3. VENLAFAXINE [Concomitant]
     Indication: DEPRESSION
     Dosage: 300MG PER DAY
     Route: 048
     Dates: start: 20110101, end: 20120310

REACTIONS (8)
  - RENAL FAILURE ACUTE [None]
  - DEPRESSED LEVEL OF CONSCIOUSNESS [None]
  - BLOOD CREATINE PHOSPHOKINASE INCREASED [None]
  - INTENTIONAL OVERDOSE [None]
  - BLOOD CREATINE PHOSPHOKINASE MB INCREASED [None]
  - SUICIDE ATTEMPT [None]
  - HYPOKALAEMIA [None]
  - HYPERTENSION [None]
